FAERS Safety Report 5208999-0 (Version None)
Quarter: 2007Q1

REPORT INFORMATION
  Report Type: 
  Country: None (occurrence: None)
  Receive Date: 20070116
  Receipt Date: 20070112
  Transmission Date: 20070707
  Serious: Yes (Life-Threatening)
  Sender: FDA-Public Use
  Company Number: IT-GLAXOSMITHKLINE-B0454178A

PATIENT
  Age: 52 Year
  Sex: Male

DRUGS (2)
  1. VENTOLIN [Suspect]
     Route: 042
     Dates: start: 20061102, end: 20061102
  2. ADRENALINE [Suspect]
     Route: 042
     Dates: start: 20061102, end: 20061102

REACTIONS (1)
  - VENTRICULAR FIBRILLATION [None]
